FAERS Safety Report 24449652 (Version 1)
Quarter: 2024Q4

REPORT INFORMATION
  Report Type: Spontaneous
  Country: US (occurrence: None)
  Receive Date: 20241016
  Receipt Date: 20241016
  Transmission Date: 20250115
  Serious: Yes (Hospitalization)
  Sender: Public
  Company Number: None

PATIENT
  Age: 44 Year
  Sex: Female

DRUGS (1)
  1. BENLYSTA [Suspect]
     Active Substance: BELIMUMAB
     Indication: Systemic lupus erythematosus
     Dosage: OTHER FREQUENCY : EVERY7DAYS;?
     Route: 042
     Dates: start: 202108

REACTIONS (4)
  - Systemic lupus erythematosus [None]
  - Condition aggravated [None]
  - Rhabdomyolysis [None]
  - Therapy interrupted [None]

NARRATIVE: CASE EVENT DATE: 20241014
